FAERS Safety Report 6038112-1 (Version None)
Quarter: 2009Q1

REPORT INFORMATION
  Report Type: 
  Country: None (occurrence: None)
  Receive Date: 20090115
  Receipt Date: 20090112
  Transmission Date: 20090719
  Serious: Yes (Death, Other)
  Sender: FDA-Public Use
  Company Number: DE-BAYER-200910906GPV

PATIENT
  Age: 84 Year
  Sex: Female

DRUGS (10)
  1. ACETYLSALICYLIC ACID SRT [Suspect]
     Indication: CORONARY ARTERY DISEASE
     Route: 048
     Dates: end: 20080415
  2. ACTRAPID PENFILL/INSULIN HUMAN [Concomitant]
     Indication: TYPE 2 DIABETES MELLITUS
     Route: 065
  3. ALLOPURINOL [Concomitant]
     Indication: HYPERURICAEMIA
     Route: 048
     Dates: end: 20080415
  4. AMLODIPINE [Concomitant]
     Indication: HYPERTENSION
     Route: 048
  5. HYDROCHLOROTHIAZIDE [Concomitant]
     Indication: HYPERTENSION
     Route: 048
     Dates: end: 20080415
  6. METOPROLOL [Concomitant]
     Indication: HYPERTENSION
     Route: 048
     Dates: end: 20080415
  7. PANTOPRAZOLE SODIUM [Concomitant]
     Indication: DRUG USE FOR UNKNOWN INDICATION
     Route: 048
  8. RAMIPRIL [Concomitant]
     Indication: HYPERTENSION
     Route: 048
  9. SERTRALINE [Concomitant]
     Indication: DEPRESSION
     Route: 048
  10. ARICEPT [Concomitant]
     Indication: DEMENTIA
     Route: 048
     Dates: end: 20080415

REACTIONS (2)
  - ACUTE MYOCARDIAL INFARCTION [None]
  - DUODENAL ULCER HAEMORRHAGE [None]
